FAERS Safety Report 10781595 (Version 1)
Quarter: 2015Q1

REPORT INFORMATION
  Report Type: Report from Study
  Country: FR (occurrence: FR)
  Receive Date: 20150210
  Receipt Date: 20150210
  Transmission Date: 20150721
  Serious: Yes (Hospitalization)
  Sender: FDA-Public Use
  Company Number: FR-TEVA-539270ISR

PATIENT
  Age: 75 Year
  Sex: Male

DRUGS (4)
  1. INEXIUM 20 [Concomitant]
     Indication: GASTROOESOPHAGEAL REFLUX DISEASE
     Dosage: 20 MILLIGRAM DAILY; 1 IN THE EVENING
     Route: 048
     Dates: start: 20140219
  2. ORACILLINE [Concomitant]
     Active Substance: PENICILLIN V
     Indication: INFECTION
     Dosage: 2 DOSAGE FORMS DAILY; 1 DOSE IN THE MORNING AND 1 DOSE IN EVENING
     Route: 048
     Dates: start: 20140219
  3. TEVAGRASTIM 30MUI/ 0.5 ML [Suspect]
     Active Substance: FILGRASTIM
     Indication: NEUTROPENIA
     Route: 058
     Dates: start: 20141210, end: 20141214
  4. CLAIRYG [Concomitant]
     Active Substance: HUMAN IMMUNOGLOBULIN G
     Indication: IMMUNODEFICIENCY
     Route: 041
     Dates: start: 20140219

REACTIONS (5)
  - Weight decreased [None]
  - Aplasia [Recovered/Resolved]
  - Epistaxis [Recovered/Resolved]
  - Hypokalaemia [None]
  - Injection site bruising [None]

NARRATIVE: CASE EVENT DATE: 20141215
